FAERS Safety Report 5105513-5 (Version None)
Quarter: 2006Q3

REPORT INFORMATION
  Report Type: 
  Country: None (occurrence: None)
  Receive Date: 20060915
  Receipt Date: 20060908
  Transmission Date: 20061208
  Serious: Yes (Death)
  Sender: FDA-Public Use
  Company Number: US-BRISTOL-MYERS SQUIBB COMPANY-13504394

PATIENT
  Sex: Male

DRUGS (1)
  1. CISPLATIN [Suspect]
     Indication: GERM CELL CANCER

REACTIONS (1)
  - PULMONARY EMBOLISM [None]
